FAERS Safety Report 12596751 (Version 1)
Quarter: 2016Q3

REPORT INFORMATION
  Report Type: Spontaneous
  Country: US (occurrence: None)
  Receive Date: 20160726
  Receipt Date: 20160726
  Transmission Date: 20161109
  Serious: Yes (Other)
  Sender: FDA-Public Use
  Company Number: None

PATIENT
  Age: 63 Year
  Sex: Female
  Weight: 104.33 kg

DRUGS (7)
  1. DOXYCYCLINE HYCLATE 100MG TABS, 100 MG SUN PHARMACEUTICALS [Suspect]
     Active Substance: DOXYCYCLINE HYCLATE
     Indication: TICK-BORNE FEVER
     Route: 048
     Dates: start: 20160615
  2. LISINOPRIL. [Concomitant]
     Active Substance: LISINOPRIL
  3. COENZYME Q10 [Concomitant]
     Active Substance: UBIDECARENONE
  4. NATURE-THROID [Concomitant]
     Active Substance: THYROID, PORCINE
  5. B6 [Concomitant]
     Active Substance: PYRIDOXINE HYDROCHLORIDE
  6. VITAMIN D3 [Concomitant]
     Active Substance: CHOLECALCIFEROL
  7. ZINC [Concomitant]
     Active Substance: ZINC\ZINC CHLORIDE

REACTIONS (7)
  - Nausea [None]
  - Product formulation issue [None]
  - Headache [None]
  - Malaise [None]
  - Diarrhoea [None]
  - Gastroenteritis viral [None]
  - Vomiting [None]

NARRATIVE: CASE EVENT DATE: 20160615
